FAERS Safety Report 7693211-3 (Version None)
Quarter: 2011Q3

REPORT INFORMATION
  Report Type: 
  Country: None (occurrence: None)
  Receive Date: 20110819
  Receipt Date: 20110810
  Transmission Date: 20111222
  Serious: Yes (Hospitalization, Disabling, Other)
  Sender: FDA-Public Use
  Company Number: DE-AMGEN-DEUSP2011039716

PATIENT
  Age: 60 Year
  Sex: Male
  Weight: 60 kg

DRUGS (2)
  1. ENBREL [Suspect]
     Indication: RHEUMATOID ARTHRITIS
     Dosage: UNK
     Dates: start: 20071001, end: 20080401
  2. ENBREL [Suspect]
     Dosage: UNK
     Dates: end: 20110301

REACTIONS (3)
  - RHEUMATOID ARTHRITIS [None]
  - HERPES ZOSTER [None]
  - PROSTATE CANCER METASTATIC [None]
